FAERS Safety Report 12820422 (Version 1)
Quarter: 2016Q4

REPORT INFORMATION
  Report Type: Report from Study
  Country: US (occurrence: US)
  Receive Date: 20161006
  Receipt Date: 20161006
  Transmission Date: 20170207
  Serious: No
  Sender: FDA-Public Use
  Company Number: US-AMGEN-USASL2014095976

PATIENT
  Age: 76 Year
  Sex: Female
  Weight: 60.32 kg

DRUGS (7)
  1. OMEGA 3                            /01333901/ [Concomitant]
     Active Substance: FISH OIL\TOCOPHEROL
     Dosage: UNK
  2. PROLIA [Suspect]
     Active Substance: DENOSUMAB
     Indication: OSTEOPOROSIS
     Dosage: 60 MG, Q6MO
     Route: 058
     Dates: start: 201407
  3. CALTRATE WITH VITAMIN D [Concomitant]
     Active Substance: CALCIUM CARBONATE\CHOLECALCIFEROL
     Dosage: (600 MG/400 IU) 2 PILLS A DAY
  4. MAGNESIUM                          /00082501/ [Concomitant]
     Dosage: UNK
  5. LISINOPRIL                         /00894002/ [Concomitant]
     Active Substance: LISINOPRIL
     Dosage: 10 MG, QD
  6. CALCIUM [Concomitant]
     Active Substance: CALCIUM
  7. VITAMIN D                          /00107901/ [Concomitant]
     Active Substance: ERGOCALCIFEROL

REACTIONS (14)
  - Arthralgia [Recovered/Resolved]
  - Abdominal discomfort [Unknown]
  - Gait disturbance [Unknown]
  - Blood cholesterol increased [Unknown]
  - Blood creatinine increased [Unknown]
  - Sciatica [Unknown]
  - Sleep disorder [Unknown]
  - Bursitis [Unknown]
  - Myalgia [Unknown]
  - Muscle spasms [Unknown]
  - Blood calcium increased [Unknown]
  - Glomerular filtration rate decreased [Unknown]
  - Pain in extremity [Not Recovered/Not Resolved]
  - Bone pain [Unknown]

NARRATIVE: CASE EVENT DATE: 201407
